FAERS Safety Report 12601419 (Version 2)
Quarter: 2017Q3

REPORT INFORMATION
  Report Type: Spontaneous
  Country: GB (occurrence: GB)
  Receive Date: 20160728
  Receipt Date: 20170822
  Transmission Date: 20171127
  Serious: Yes (Life-Threatening, Disabling, Other)
  Sender: FDA-Public Use
  Company Number: GB-ACCORD-042647

PATIENT
  Age: 19 Year
  Sex: Male
  Weight: 68 kg

DRUGS (1)
  1. SERTRALINE [Suspect]
     Active Substance: SERTRALINE HYDROCHLORIDE
     Indication: ANXIETY
     Route: 048
     Dates: start: 20160203, end: 20160305

REACTIONS (10)
  - Cognitive disorder [Recovering/Resolving]
  - Head discomfort [Recovering/Resolving]
  - Erectile dysfunction [Recovering/Resolving]
  - Suicidal ideation [Unknown]
  - Anhedonia [Not Recovered/Not Resolved]
  - Depression [Recovering/Resolving]
  - Loss of libido [Not Recovered/Not Resolved]
  - Withdrawal syndrome [Recovering/Resolving]
  - Anorgasmia [Recovering/Resolving]
  - Memory impairment [Recovering/Resolving]

NARRATIVE: CASE EVENT DATE: 201602
